FAERS Safety Report 11438325 (Version 1)
Quarter: 2015Q3

REPORT INFORMATION
  Report Type: Spontaneous
  Country: US (occurrence: US)
  Receive Date: 20150901
  Receipt Date: 20150901
  Transmission Date: 20151125
  Serious: No
  Sender: FDA-Public Use
  Company Number: US-ROCHE-801203

PATIENT
  Sex: Female

DRUGS (5)
  1. PEGASYS [Suspect]
     Active Substance: PEGINTERFERON ALFA-2A
     Indication: CHRONIC HEPATITIS C
     Route: 058
  2. PEGASYS [Suspect]
     Active Substance: PEGINTERFERON ALFA-2A
     Route: 058
  3. RIBAVIRIN. [Suspect]
     Active Substance: RIBAVIRIN
     Indication: PRODUCT USED FOR UNKNOWN INDICATION
     Route: 048
  4. RIBASPHERE RIBAPAK [Suspect]
     Active Substance: RIBAVIRIN
     Indication: CHRONIC HEPATITIS C
     Route: 048
  5. BOCEPREVIR [Suspect]
     Active Substance: BOCEPREVIR
     Indication: CHRONIC HEPATITIS C
     Route: 048
     Dates: start: 20121229

REACTIONS (3)
  - Dyspnoea exertional [Unknown]
  - Dysgeusia [Unknown]
  - Pain [Unknown]
